FAERS Safety Report 9892565 (Version 2)
Quarter: 2014Q1

REPORT INFORMATION
  Report Type: Spontaneous
  Country: CA (occurrence: CA)
  Receive Date: 20140212
  Receipt Date: 20140212
  Transmission Date: 20141002
  Serious: Yes (Hospitalization)
  Sender: FDA-Public Use
  Company Number: CA-009507513-1312CAN005663

PATIENT
  Age: 68 Year
  Sex: Male

DRUGS (3)
  1. PEGETRON [Suspect]
     Indication: HEPATITIS C
     Dosage: 100 MICROGRAM, QW
     Route: 058
     Dates: start: 201306, end: 20140104
  2. PEGETRON [Suspect]
     Dosage: 2400 MG, UNK
     Route: 048
     Dates: start: 201306
  3. VICTRELIS [Suspect]
     Indication: HEPATITIS C
     Dosage: 800 MG, UNK
     Route: 048
     Dates: start: 201306, end: 20140104

REACTIONS (18)
  - Blood potassium decreased [Unknown]
  - Dehydration [Unknown]
  - Diarrhoea [Unknown]
  - Vomiting [Unknown]
  - Fatigue [Unknown]
  - Insomnia [Unknown]
  - Diarrhoea [Unknown]
  - Pyrexia [Unknown]
  - Pruritus [Unknown]
  - Dry skin [Unknown]
  - Decreased appetite [Unknown]
  - Weight decreased [Unknown]
  - Asthenia [Unknown]
  - Dysgeusia [Unknown]
  - Viral load decreased [Unknown]
  - Dizziness [Unknown]
  - Skin disorder [Unknown]
  - Skin wrinkling [Unknown]
